FAERS Safety Report 9825693 (Version 1)
Quarter: 2013Q4

REPORT INFORMATION
  Report Type: Spontaneous
  Country: US (occurrence: None)
  Receive Date: 20131028
  Receipt Date: 20131028
  Transmission Date: 20140711
  Serious: Yes (Other)
  Sender: FDA-Public Use
  Company Number: 2013US002324

PATIENT
  Age: 49 Year
  Sex: Female
  Weight: 88 kg

DRUGS (7)
  1. ICLUSIG [Suspect]
     Indication: CHRONIC MYELOID LEUKAEMIA
     Dosage: 30 MG, QD, ORAL
     Route: 048
     Dates: start: 20130709
  2. SYNTHROID (LEVOTHYROXINE SODIUM) [Concomitant]
  3. SINGULAIR [Concomitant]
  4. ASTEPRO (AZELASTINE HYDROCHLORIDE) [Concomitant]
  5. PAXIL (PAROXETINE HYDROCHLORIDE) [Concomitant]
  6. OTC DECONGESTANT (PSEUDOEPHEDRINE HYDROCHLORIDE) [Concomitant]
  7. AMBIEN (ZOLPIDEM TARTRATE) [Concomitant]

REACTIONS (5)
  - Abdominal distension [None]
  - Bone pain [None]
  - Fatigue [None]
  - Constipation [None]
  - Abdominal pain upper [None]
